FAERS Safety Report 4412067-5 (Version None)
Quarter: 2004Q3

REPORT INFORMATION
  Report Type: 
  Country: None (occurrence: None)
  Receive Date: 20040730
  Receipt Date: 20040719
  Transmission Date: 20050211
  Serious: Yes (Other)
  Sender: FDA-Public Use
  Company Number: US-BRISTOL-MYERS SQUIBB COMPANY-12644340

PATIENT
  Age: 47 Year
  Sex: Female

DRUGS (2)
  1. DILTIAZEM HCL [Suspect]
     Indication: SINUS TACHYCARDIA
  2. CARBAMAZEPINE [Interacting]
     Indication: BIPOLAR DISORDER

REACTIONS (6)
  - ATAXIA [None]
  - CEREBELLAR SYNDROME [None]
  - DRUG INTERACTION [None]
  - DRUG TOXICITY [None]
  - DYSARTHRIA [None]
  - OPHTHALMOPLEGIA [None]
